FAERS Safety Report 24462033 (Version 1)
Quarter: 2024Q4

REPORT INFORMATION
  Report Type: Spontaneous
  Country: US (occurrence: US)
  Receive Date: 20241018
  Receipt Date: 20241018
  Transmission Date: 20250115
  Serious: No
  Sender: UCB
  Company Number: US-UCBSA-2024029734

PATIENT
  Sex: Female
  Weight: 68.027 kg

DRUGS (1)
  1. BIMZELX [Suspect]
     Active Substance: BIMEKIZUMAB-BKZX
     Indication: Psoriasis
     Dosage: INJECT 320MG (2 PENS) SUBCUTANEOUSLY AT WEEK 4,8,12, AND 16 AS DIRECTED.
     Route: 058
     Dates: start: 202405

REACTIONS (2)
  - Acne [Unknown]
  - Upper respiratory tract infection [Unknown]

NARRATIVE: CASE EVENT DATE: 20240101
